FAERS Safety Report 9205865 (Version 1)
Quarter: 2013Q2

REPORT INFORMATION
  Report Type: Spontaneous
  Country: CA (occurrence: CA)
  Receive Date: 20130403
  Receipt Date: 20130403
  Transmission Date: 20140414
  Serious: Yes (Hospitalization, Other)
  Sender: FDA-Public Use
  Company Number: CA-BAYER-2013-040105

PATIENT
  Age: 31 Year
  Sex: Female

DRUGS (3)
  1. YAZ [Suspect]
  2. YASMIN 21 [Suspect]
  3. DICLECTIN [Concomitant]

REACTIONS (2)
  - Pancreatitis [None]
  - Cholecystitis chronic [None]
